FAERS Safety Report 25939366 (Version 1)
Quarter: 2025Q4

REPORT INFORMATION
  Report Type: Spontaneous
  Country: GB (occurrence: GB)
  Receive Date: 20251020
  Receipt Date: 20251020
  Transmission Date: 20260117
  Serious: Yes (Other)
  Sender: AMGEN
  Company Number: GB-BEH-2025221207

PATIENT
  Age: 68 Year
  Sex: Male
  Weight: 68.6 kg

DRUGS (10)
  1. TAVNEOS [Suspect]
     Active Substance: AVACOPAN
     Indication: Anti-neutrophil cytoplasmic antibody positive vasculitis
     Dosage: 30 MG, BID
     Route: 048
     Dates: start: 20231227, end: 20241129
  2. TAVNEOS [Suspect]
     Active Substance: AVACOPAN
     Dosage: 20 MG, BID
     Route: 048
     Dates: start: 20241129, end: 20250131
  3. TAVNEOS [Suspect]
     Active Substance: AVACOPAN
     Dosage: 10 MG, BID
     Route: 048
     Dates: start: 20250131, end: 20250516
  4. PREDNISOLONE [Concomitant]
     Active Substance: PREDNISOLONE
     Indication: Anti-neutrophil cytoplasmic antibody positive vasculitis
     Dosage: 60 MG, OD
     Route: 048
     Dates: start: 20240118, end: 20240521
  5. RITUXIMAB [Concomitant]
     Active Substance: RITUXIMAB
     Indication: Anti-neutrophil cytoplasmic antibody positive vasculitis
     Dosage: 9999.999 MG, TOT
     Route: 040
     Dates: start: 20240617, end: 20240617
  6. RITUXIMAB [Concomitant]
     Active Substance: RITUXIMAB
     Dosage: 1000 MG, TOT
     Route: 040
     Dates: start: 20231205, end: 20231205
  7. RITUXIMAB [Concomitant]
     Active Substance: RITUXIMAB
     Dosage: 1000 MG, TOT
     Route: 040
     Dates: start: 20231121, end: 20231121
  8. HYDROCORTISONE [Concomitant]
     Active Substance: HYDROCORTISONE
     Indication: Anti-neutrophil cytoplasmic antibody positive vasculitis
     Dosage: 100 MG, TOT
     Route: 040
     Dates: start: 20240617, end: 20240617
  9. HYDROCORTISONE [Concomitant]
     Active Substance: HYDROCORTISONE
     Dosage: 100 MG, TOT
     Route: 040
     Dates: start: 20231121, end: 20231121
  10. HYDROCORTISONE [Concomitant]
     Active Substance: HYDROCORTISONE
     Dosage: 100 MG, TOT
     Route: 040
     Dates: start: 20231205, end: 20231205

REACTIONS (3)
  - Lower respiratory tract infection [Recovered/Resolved]
  - Infective glossitis [Recovered/Resolved]
  - Osteoporosis [Recovering/Resolving]

NARRATIVE: CASE EVENT DATE: 20240305
